FAERS Safety Report 4508307-4 (Version None)
Quarter: 2004Q4

REPORT INFORMATION
  Report Type: 
  Country: None (occurrence: None)
  Receive Date: 20041123
  Receipt Date: 20031230
  Transmission Date: 20050328
  Serious: No
  Sender: FDA-Public Use
  Company Number: US-GLAXOSMITHKLINE-A0490843A

PATIENT
  Sex: Female

DRUGS (6)
  1. WELLBUTRIN SR [Suspect]
     Indication: DEPRESSION
     Dosage: 100MG PER DAY
     Route: 048
  2. KLONOPIN [Concomitant]
  3. TEGRETOL [Concomitant]
  4. ABILIFY [Concomitant]
  5. ELAVIL [Concomitant]
  6. DARVOCET [Concomitant]

REACTIONS (1)
  - EARLY MORNING AWAKENING [None]
